FAERS Safety Report 18159186 (Version 1)
Quarter: 2020Q3

REPORT INFORMATION
  Report Type: Spontaneous
  Country: US (occurrence: US)
  Receive Date: 20200818
  Receipt Date: 20200818
  Transmission Date: 20201103
  Serious: Yes (Other)
  Sender: FDA-Public Use
  Company Number: US-BEH-2020121048

PATIENT

DRUGS (1)
  1. PRIVIGEN [Suspect]
     Active Substance: HUMAN IMMUNOGLOBULIN G
     Indication: POLYNEUROPATHY IN MALIGNANT DISEASE
     Dosage: 60 GRAM, QMT, EVERY 28 DAYS
     Route: 065

REACTIONS (3)
  - Blood pressure decreased [Not Recovered/Not Resolved]
  - Product use in unapproved indication [Unknown]
  - No adverse event [Unknown]
